FAERS Safety Report 16705681 (Version 2)
Quarter: 2019Q3

REPORT INFORMATION
  Report Type: Spontaneous
  Country: IT (occurrence: IT)
  Receive Date: 20190815
  Receipt Date: 20190919
  Transmission Date: 20191004
  Serious: Yes (Hospitalization)
  Sender: FDA-Public Use
  Company Number: IT-ASTRAZENECA-2019SF13298

PATIENT
  Age: 76 Year
  Sex: Female

DRUGS (11)
  1. LUVION [Concomitant]
  2. BRILIQUE [Suspect]
     Active Substance: TICAGRELOR
     Indication: ANTIPLATELET THERAPY
     Route: 048
     Dates: start: 20180101, end: 20190802
  3. ZYLORIC [Concomitant]
     Active Substance: ALLOPURINOL
  4. CARDIOASPIRIN [Suspect]
     Active Substance: ASPIRIN
     Indication: ANTIPLATELET THERAPY
     Route: 048
     Dates: start: 20170101, end: 20190802
  5. PANTORC [Concomitant]
     Active Substance: PANTOPRAZOLE SODIUM
  6. TORVAST [Concomitant]
     Active Substance: ATORVASTATIN
  7. TENORMIN [Concomitant]
     Active Substance: ATENOLOL
  8. RANEXA [Concomitant]
     Active Substance: RANOLAZINE
  9. LASIX [Concomitant]
     Active Substance: FUROSEMIDE
  10. TRIATEC [Concomitant]
  11. DEPONIT [Concomitant]
     Active Substance: NITROGLYCERIN

REACTIONS (3)
  - Melaena [Recovered/Resolved]
  - Gastrointestinal polyp haemorrhage [Recovered/Resolved]
  - Asthenia [Recovered/Resolved]

NARRATIVE: CASE EVENT DATE: 20190802
